FAERS Safety Report 20603290 (Version 1)
Quarter: 2022Q1

REPORT INFORMATION
  Report Type: Report from Study
  Country: US (occurrence: US)
  Receive Date: 20220316
  Receipt Date: 20220316
  Transmission Date: 20220423
  Serious: Yes (Death, Hospitalization)
  Sender: FDA-Public Use
  Company Number: US-CELGENE-USA-20220208413

PATIENT
  Age: 68 Year
  Sex: Male
  Weight: 114.4 kg

DRUGS (6)
  1. LISOCABTAGENE MARALEUCEL [Suspect]
     Active Substance: LISOCABTAGENE MARALEUCEL
     Indication: Mantle cell lymphoma
     Dosage: 1 X 10^8 CAR + T CELLS
     Route: 041
     Dates: start: 20220207, end: 20220207
  2. CYCLOPHOSPHAMIDE [Suspect]
     Active Substance: CYCLOPHOSPHAMIDE
     Indication: Mantle cell lymphoma
     Dosage: 600 MILLIGRAM
     Route: 041
     Dates: start: 20220110, end: 20220110
  3. CYCLOPHOSPHAMIDE [Suspect]
     Active Substance: CYCLOPHOSPHAMIDE
     Dosage: 500 MILLIGRAM
     Route: 041
     Dates: start: 20220202, end: 20220204
  4. FLUDARABINE [Suspect]
     Active Substance: FLUDARABINE PHOSPHATE
     Indication: Mantle cell lymphoma
     Dosage: 60 MILLIGRAM
     Route: 041
     Dates: start: 20220110, end: 20220111
  5. FLUDARABINE [Suspect]
     Active Substance: FLUDARABINE PHOSPHATE
     Dosage: 50 MILLIGRAM
     Route: 041
     Dates: start: 20220202, end: 20220204
  6. TOCILIZUMAB [Concomitant]
     Active Substance: TOCILIZUMAB
     Indication: Cytokine release syndrome
     Route: 065
     Dates: start: 202202, end: 202202

REACTIONS (2)
  - Death [Fatal]
  - Tumour lysis syndrome [Recovered/Resolved]

NARRATIVE: CASE EVENT DATE: 20220223
